FAERS Safety Report 19202004 (Version 1)
Quarter: 2021Q2

REPORT INFORMATION
  Report Type: Spontaneous
  Country: US (occurrence: US)
  Receive Date: 20210430
  Receipt Date: 20210430
  Transmission Date: 20210717
  Serious: No
  Sender: FDA-Public Use
  Company Number: US-SA-2021SA131136

PATIENT
  Age: 72 Year
  Sex: Male

DRUGS (2)
  1. VICTOZA [Concomitant]
     Active Substance: LIRAGLUTIDE
     Route: 065
  2. ADMELOG [Suspect]
     Active Substance: INSULIN LISPRO
     Indication: TYPE 2 DIABETES MELLITUS
     Dosage: SLIDING SCALE 3 TIMES A DAY
     Route: 065

REACTIONS (1)
  - Visual impairment [Unknown]
